FAERS Safety Report 4760979-5 (Version None)
Quarter: 2005Q3

REPORT INFORMATION
  Report Type: 
  Country: None (occurrence: None)
  Receive Date: 20050901
  Receipt Date: 20050829
  Transmission Date: 20060218
  Serious: Yes (Hospitalization)
  Sender: FDA-Public Use
  Company Number: 2005-01709

PATIENT
  Age: 43 Year
  Sex: Male
  Weight: 192 kg

DRUGS (16)
  1. INTEGRILIN [Suspect]
     Dosage: SEE IMAGE
     Route: 042
     Dates: start: 20040924, end: 20040927
  2. INTEGRILIN [Suspect]
     Dosage: SEE IMAGE
     Route: 042
     Dates: start: 20040927, end: 20040927
  3. ENOXAPARIN SODIUM [Suspect]
     Dosage: 1.00 MG/KG, SUBCUTANEOUS
     Route: 058
     Dates: start: 20040924, end: 20040924
  4. HEPARIN [Concomitant]
  5. ECOTRIN (ACETYLSALICYLIC ACID) [Concomitant]
  6. PLAVIX [Concomitant]
  7. TOPROL-XL [Concomitant]
  8. MONOPRIL [Concomitant]
  9. ALTACE [Concomitant]
  10. COREG [Concomitant]
  11. NORVASC [Concomitant]
  12. LASIX [Concomitant]
  13. LIPITOR [Concomitant]
  14. ULTRACET [Concomitant]
  15. FOLIC ACID [Concomitant]
  16. PEPCID [Concomitant]

REACTIONS (7)
  - CONDITION AGGRAVATED [None]
  - FIBRIN D DIMER INCREASED [None]
  - HYPERTENSION [None]
  - PNEUMONIA [None]
  - REVERSIBLE ISCHAEMIC NEUROLOGICAL DEFICIT [None]
  - TRANSIENT ISCHAEMIC ATTACK [None]
  - VOMITING [None]
